FAERS Safety Report 4722553-6 (Version None)
Quarter: 2005Q3

REPORT INFORMATION
  Report Type: 
  Country: None (occurrence: None)
  Receive Date: 20050720
  Receipt Date: 20050705
  Transmission Date: 20060218
  Serious: Yes (Life-Threatening, Hospitalization, Other)
  Sender: FDA-Public Use
  Company Number: 2005-00266

PATIENT
  Age: 59 Year
  Sex: Male
  Weight: 78 kg

DRUGS (25)
  1. VELCADE [Suspect]
     Indication: MULTIPLE SCLEROSIS
     Dosage: 1.30 MG/M2, IV BOLUS
     Route: 040
     Dates: start: 20050211, end: 20050211
  2. ACETAMINOPHEN [Concomitant]
  3. AEROCHAMBER INHALATION INHALER [Concomitant]
  4. COMBIVENT (SALBUTAMOL) [Concomitant]
  5. AMMONIUM LACTATE (AMMONIUM LACTATE) LOTION (EXCEPT LOTION FOR EYE) [Concomitant]
  6. ARTIFICIAL TEARS SOLUTION (EXCEPT SYRUTP) [Concomitant]
  7. BISACODYL (BISACODYL) SUPPOSITORY [Concomitant]
  8. CALCIUM CARBONATE (CALCIUM CARBONATE)TABLET [Concomitant]
  9. CAMPHOR (CAMPHOR) LOTION (EXCEPT LOTION FOR EYE),0.5% [Concomitant]
  10. CHLORHEXIDINE GLUONATE (CHLORHEXIDINE GLUCONATE) [Concomitant]
  11. DOCUSATE (DOCUSATE) CAPSULE [Concomitant]
  12. DOXYCYCLINE (DOXYCYCLINE) CAPSULE [Concomitant]
  13. EPOETIN ALFA (EPOETIN ALFA) [Concomitant]
  14. FLUOCINONIDE [Concomitant]
  15. FUROSEMIDE [Concomitant]
  16. METOPROLOL TARTRATE [Concomitant]
  17. NEPHRO-VITE RX (ASCORBIC ACID, VITAMIN B NOS, FOLIC ACID)TABLET [Concomitant]
  18. NIFEDIPINE (NIFEDIPINE) TABLET [Concomitant]
  19. OMEPRAZOLE (OMEPRAZOLE)CAPSULE [Concomitant]
  20. OXYCODONE (OXYCODONE) TABLET [Concomitant]
  21. SENNA (SENNA) TABLET [Concomitant]
  22. SEVELAMER (SEVELAMER) TABLET [Concomitant]
  23. TEMAZEPAM [Concomitant]
  24. TRAZODONE HCL [Concomitant]
  25. HYDROXYZINE PAMOATE (HYDROXYZINE EMBONATE) CAPSULE [Concomitant]

REACTIONS (35)
  - ABDOMINAL PAIN UPPER [None]
  - ACQUIRED DIAPHRAGMATIC EVENTRATION [None]
  - ACTIVATED PARTIAL THROMBOPLASTIN TIME PROLONGED [None]
  - BLOOD ALBUMIN DECREASED [None]
  - BLOOD GLUCOSE INCREASED [None]
  - BLOOD LACTATE DEHYDROGENASE INCREASED [None]
  - BLOOD MAGNESIUM INCREASED [None]
  - BLOOD UREA INCREASED [None]
  - COMPUTERISED TOMOGRAM ABNORMAL [None]
  - DEEP VEIN THROMBOSIS [None]
  - DELIRIUM [None]
  - EFFUSION [None]
  - ELECTROLYTE IMBALANCE [None]
  - EPISTAXIS [None]
  - HAEMATEMESIS [None]
  - HAEMATOCRIT DECREASED [None]
  - HAEMOGLOBIN DECREASED [None]
  - HAEMOPTYSIS [None]
  - HEPATOMEGALY [None]
  - INTERNATIONAL NORMALISED RATIO DECREASED [None]
  - MENTAL IMPAIRMENT [None]
  - MENTAL STATUS CHANGES [None]
  - METABOLIC ALKALOSIS [None]
  - NAUSEA [None]
  - PLATELET COUNT DECREASED [None]
  - PLEURAL EFFUSION [None]
  - PNEUMONIA [None]
  - PROTHROMBIN TIME PROLONGED [None]
  - PYREXIA [None]
  - RENAL CYST [None]
  - RESPIRATORY ALKALOSIS [None]
  - SCAN ABDOMEN ABNORMAL [None]
  - SUBDURAL HAEMATOMA [None]
  - THROMBOSIS [None]
  - VOMITING [None]
